FAERS Safety Report 24838551 (Version 2)
Quarter: 2025Q1

REPORT INFORMATION
  Report Type: Spontaneous
  Country: GR (occurrence: GR)
  Receive Date: 20250113
  Receipt Date: 20250117
  Transmission Date: 20250408
  Serious: Yes (Other)
  Sender: GILEAD
  Company Number: GR-GILEAD-2025-0699705

PATIENT
  Age: 75 Year
  Sex: Male

DRUGS (1)
  1. YESCARTA [Suspect]
     Active Substance: AXICABTAGENE CILOLEUCEL
     Indication: B-cell lymphoma
     Route: 065
     Dates: start: 20241126, end: 20241126

REACTIONS (1)
  - Monoplegia [Not Recovered/Not Resolved]
